FAERS Safety Report 9308536 (Version 6)
Quarter: 2013Q3

REPORT INFORMATION
  Report Type: Spontaneous
  Country: JP (occurrence: JP)
  Receive Date: 20130524
  Receipt Date: 20130710
  Transmission Date: 20140515
  Serious: Yes (Hospitalization)
  Sender: FDA-Public Use
  Company Number: JP-PFIZER INC-2013158482

PATIENT
  Age: 39 Year
  Sex: Male

DRUGS (7)
  1. SEIBULE [Suspect]
     Indication: TYPE 2 DIABETES MELLITUS
     Dosage: 50 MG, 3X/DAY
     Route: 048
     Dates: start: 20130510, end: 20130513
  2. VOGLIBOSE [Suspect]
     Indication: TYPE 2 DIABETES MELLITUS
     Dosage: 0.6 MG, 1X/DAY
     Route: 048
     Dates: start: 20130418, end: 20130509
  3. METHYCOOL [Suspect]
     Indication: CUBITAL TUNNEL SYNDROME
     Dosage: 1500 UG, 1X/DAY
     Route: 048
     Dates: start: 20130411, end: 20130513
  4. GLIMEPIRIDE [Concomitant]
     Dosage: 0.5MG/DAILY
     Route: 048
     Dates: start: 20130423, end: 20130509
  5. TRADJENTA [Concomitant]
     Dosage: UNK
     Route: 048
     Dates: start: 20130510, end: 20130513
  6. JANUVIA [Concomitant]
     Dosage: UNK
     Dates: start: 20130418, end: 20130509
  7. LANTUS [Concomitant]
     Dosage: UNK
     Dates: start: 20130418

REACTIONS (1)
  - Liver disorder [Recovering/Resolving]
